FAERS Safety Report 8806099 (Version 2)
Quarter: 2012Q4

REPORT INFORMATION
  Report Type: 
  Country: US (occurrence: US)
  Receive Date: 20120925
  Receipt Date: 20121030
  Transmission Date: 20130627
  Serious: No
  Sender: FDA-Public Use
  Company Number: US-009507513-1209USA001318

PATIENT
  Sex: Female
  Weight: 81.63 kg

DRUGS (1)
  1. DULERA [Suspect]
     Indication: ASTHMA
     Dosage: 2 DF, bid
     Route: 055
     Dates: start: 20120723, end: 20120726

REACTIONS (2)
  - Rash [Recovered/Resolved]
  - Rash pruritic [Recovered/Resolved]
